FAERS Safety Report 4542007-X (Version None)
Quarter: 2004Q4

REPORT INFORMATION
  Report Type: 
  Country: None (occurrence: None)
  Receive Date: 20041227
  Receipt Date: 20041215
  Transmission Date: 20050328
  Serious: Yes (Death)
  Sender: FDA-Public Use
  Company Number: MK200412-0318-1

PATIENT
  Age: 16 Year
  Sex: Male

DRUGS (2)
  1. ANAFRANIL [Suspect]
     Dosage: DAILY
     Dates: start: 20020315, end: 20030715
  2. RISPERDAL [Suspect]

REACTIONS (1)
  - NEUROLEPTIC MALIGNANT SYNDROME [None]
